FAERS Safety Report 20383634 (Version 4)
Quarter: 2022Q1

REPORT INFORMATION
  Report Type: Spontaneous
  Country: US (occurrence: US)
  Receive Date: 20220127
  Receipt Date: 20220328
  Transmission Date: 20220423
  Serious: Yes (Death, Hospitalization, Other)
  Sender: FDA-Public Use
  Company Number: US-PFIZER INC-202200116003

PATIENT
  Age: 75 Year
  Sex: Female
  Weight: 56.7 kg

DRUGS (1)
  1. BRAFTOVI [Suspect]
     Active Substance: ENCORAFENIB
     Indication: Colon cancer
     Dosage: 300 MG, 1X/DAY (TAKE 4 CAPSULES EVERY MORNING AT THE SAME TIME)
     Route: 048
     Dates: start: 20210427, end: 20210428

REACTIONS (7)
  - Neoplasm progression [Fatal]
  - Acute kidney injury [Recovering/Resolving]
  - Haemoptysis [Unknown]
  - Haematemesis [Unknown]
  - Loss of consciousness [Unknown]
  - Lethargy [Unknown]
  - Blood pressure decreased [Unknown]

NARRATIVE: CASE EVENT DATE: 20210428
